FAERS Safety Report 10631434 (Version 1)
Quarter: 2014Q4

REPORT INFORMATION
  Report Type: Spontaneous
  Country: US (occurrence: US)
  Receive Date: 20141205
  Receipt Date: 20141205
  Transmission Date: 20150529
  Serious: No
  Sender: FDA-Public Use
  Company Number: US-BRISTOL-MYERS SQUIBB COMPANY-21044490

PATIENT
  Age: 61 Year
  Sex: Female

DRUGS (10)
  1. ABATACEPT SUBQ INJECTION 125MG/ML [Suspect]
     Active Substance: ABATACEPT
     Indication: RHEUMATOID ARTHRITIS
     Route: 058
     Dates: start: 201403
  2. TRAMADOL HCL [Concomitant]
     Active Substance: TRAMADOL HYDROCHLORIDE
  3. LEUCOVORIN CALCIUM. [Concomitant]
     Active Substance: LEUCOVORIN CALCIUM
  4. PREDNISONE. [Concomitant]
     Active Substance: PREDNISONE
  5. FISH OIL [Concomitant]
     Active Substance: FISH OIL
  6. CALTRATE WITH VITAMIN D [Concomitant]
     Active Substance: CALCIUM CARBONATE\VITAMIN D
     Dosage: CALTRATE 600+D
  7. VITAMIN D [Concomitant]
     Active Substance: CHOLECALCIFEROL
  8. METHOTREXATE [Concomitant]
     Active Substance: METHOTREXATE
  9. LORAZEPAM. [Concomitant]
     Active Substance: LORAZEPAM
  10. LISINOPRIL. [Concomitant]
     Active Substance: LISINOPRIL

REACTIONS (2)
  - Dry skin [Not Recovered/Not Resolved]
  - Laceration [Not Recovered/Not Resolved]
